FAERS Safety Report 6557984-5 (Version None)
Quarter: 2010Q1

REPORT INFORMATION
  Report Type: 
  Country: None (occurrence: None)
  Receive Date: 20100129
  Receipt Date: 20100120
  Transmission Date: 20100710
  Serious: No
  Sender: FDA-Public Use
  Company Number: US-BAYER-201011958NA

PATIENT
  Age: 26 Year
  Sex: Female

DRUGS (1)
  1. YASMIN [Suspect]
     Indication: VAGINAL HAEMORRHAGE
     Dosage: HIGH DOSES
     Route: 048
     Dates: start: 20060101

REACTIONS (1)
  - BLOOD TRIGLYCERIDES INCREASED [None]
